FAERS Safety Report 17396003 (Version 2)
Quarter: 2020Q2

REPORT INFORMATION
  Report Type: Spontaneous
  Country: US (occurrence: US)
  Receive Date: 20200210
  Receipt Date: 20200604
  Transmission Date: 20200713
  Serious: No
  Sender: FDA-Public Use
  Company Number: US-VERTEX PHARMACEUTICALS-2020-000805

PATIENT
  Age: 14 Year
  Sex: Male
  Weight: 61 kg

DRUGS (1)
  1. TRIKAFTA [Suspect]
     Active Substance: ELEXACAFTOR\IVACAFTOR\TEZACAFTOR
     Indication: CYSTIC FIBROSIS
     Dosage: 100MG ELEXACAFTOR/50MG TEZACAFTOR/75MG IVACAFTOR AND 150MG IVACAFTOR, BID
     Route: 048
     Dates: start: 20200108

REACTIONS (6)
  - Weight increased [Unknown]
  - Headache [Recovered/Resolved]
  - Frequent bowel movements [Not Recovered/Not Resolved]
  - Productive cough [Unknown]
  - Abdominal pain upper [Not Recovered/Not Resolved]
  - Vomiting [Unknown]

NARRATIVE: CASE EVENT DATE: 202001
